FAERS Safety Report 9701156 (Version 1)
Quarter: 2013Q4

REPORT INFORMATION
  Report Type: Spontaneous
  Country: US (occurrence: US)
  Receive Date: 20131121
  Receipt Date: 20131121
  Transmission Date: 20140711
  Serious: No
  Sender: FDA-Public Use
  Company Number: US-GILEAD-2008-0015849

PATIENT
  Age: 74 Year
  Sex: Female
  Weight: 136.8 kg

DRUGS (9)
  1. LETAIRIS [Suspect]
     Indication: PULMONARY ARTERIAL HYPERTENSION
     Route: 048
     Dates: start: 20080221, end: 20080317
  2. NOVOLIN [Concomitant]
     Route: 058
  3. ALLOPURINOL [Concomitant]
     Route: 048
  4. LOTREL [Concomitant]
     Route: 048
  5. CELEXA [Concomitant]
     Route: 048
  6. COUMADIN [Concomitant]
     Route: 048
  7. ULTRAM ER [Concomitant]
     Route: 048
  8. LASIX [Concomitant]
     Route: 048
  9. LOPRESSOR [Concomitant]
     Route: 048

REACTIONS (1)
  - Local swelling [None]
